FAERS Safety Report 4641916-0 (Version None)
Quarter: 2005Q2

REPORT INFORMATION
  Report Type: 
  Country: None (occurrence: None)
  Receive Date: 20050420
  Receipt Date: 20050406
  Transmission Date: 20051028
  Serious: Yes (Other)
  Sender: FDA-Public Use
  Company Number: USA040772519

PATIENT
  Age: 61 Year
  Sex: Male
  Weight: 93 kg

DRUGS (3)
  1. HUMALOG [Suspect]
  2. ENALAPRIL [Concomitant]
  3. AVANDIA [Concomitant]

REACTIONS (4)
  - COLONOSCOPY ABNORMAL [None]
  - HAEMATOCHEZIA [None]
  - LYMPHADENOPATHY [None]
  - NON-HODGKIN'S LYMPHOMA [None]
